FAERS Safety Report 24179067 (Version 2)
Quarter: 2025Q1

REPORT INFORMATION
  Report Type: Report from Study
  Country: DE (occurrence: DE)
  Receive Date: 20240806
  Receipt Date: 20250205
  Transmission Date: 20250409
  Serious: Yes (Life-Threatening, Hospitalization)
  Sender: NORDIC PHARMA
  Company Number: DE-SAMSUNG BIOEPIS-SB-2024-21747

PATIENT
  Age: 53 Year
  Sex: Female

DRUGS (3)
  1. METHOTREXATE [Suspect]
     Active Substance: METHOTREXATE
     Indication: Rheumatoid arthritis
  2. ETANERCEPT [Concomitant]
     Active Substance: ETANERCEPT
     Indication: Rheumatoid arthritis
     Route: 065
     Dates: end: 202407
  3. ETANERCEPT [Concomitant]
     Active Substance: ETANERCEPT
     Indication: Rheumatoid arthritis
     Route: 065

REACTIONS (3)
  - Squamous cell carcinoma of the cervix [Not Recovered/Not Resolved]
  - Uterine cancer [Not Recovered/Not Resolved]
  - Anaemia postoperative [Not Recovered/Not Resolved]

NARRATIVE: CASE EVENT DATE: 20240401
